FAERS Safety Report 9925064 (Version 1)
Quarter: 2014Q1

REPORT INFORMATION
  Report Type: Spontaneous
  Country: US (occurrence: US)
  Receive Date: 20140226
  Receipt Date: 20140226
  Transmission Date: 20141002
  Serious: Yes (Hospitalization, Other)
  Sender: FDA-Public Use
  Company Number: US-ROXANE LABORATORIES, INC.-2014-RO-00257RO

PATIENT
  Age: 66 Year
  Sex: Male

DRUGS (7)
  1. VALACYCLOVIR HYDROCHLORIDE [Suspect]
     Indication: OPHTHALMIC HERPES ZOSTER
     Dosage: 1000 MG
     Route: 048
  2. TRIFLURIDINE [Concomitant]
     Indication: OPHTHALMIC HERPES ZOSTER
     Route: 065
  3. SIMVASTATIN [Concomitant]
     Route: 065
  4. METOPROLOL [Concomitant]
     Route: 065
  5. SEVELAMER [Concomitant]
     Route: 065
  6. FUROSEMIDE [Concomitant]
     Route: 065
  7. GLIMEPERIDE [Concomitant]
     Route: 065

REACTIONS (3)
  - Neurotoxicity [Recovered/Resolved]
  - Renal impairment [Unknown]
  - Insomnia [Unknown]
